FAERS Safety Report 14202558 (Version 1)
Quarter: 2017Q4

REPORT INFORMATION
  Report Type: Spontaneous
  Country: US (occurrence: US)
  Receive Date: 20171117
  Receipt Date: 20171117
  Transmission Date: 20180321
  Serious: Yes (Life-Threatening, Hospitalization, Other)
  Sender: FDA-Public Use
  Company Number: US-RANBAXY-2015US-94277

PATIENT
  Age: 52 Year
  Sex: Female

DRUGS (1)
  1. FLECAINIDE ACETATE. [Suspect]
     Active Substance: FLECAINIDE ACETATE
     Indication: PRODUCT USED FOR UNKNOWN INDICATION
     Dosage: UNK
     Route: 048

REACTIONS (5)
  - Electrocardiogram QRS complex prolonged [Recovering/Resolving]
  - Overdose [Recovering/Resolving]
  - Bradycardia [Recovering/Resolving]
  - Cardiac arrest [Recovering/Resolving]
  - Hypokalaemia [Recovering/Resolving]
